FAERS Safety Report 6264715-5 (Version None)
Quarter: 2009Q3

REPORT INFORMATION
  Report Type: 
  Country: None (occurrence: None)
  Receive Date: 20090710
  Receipt Date: 20090703
  Transmission Date: 20100115
  Serious: Yes (Death, Hospitalization, Disabling)
  Sender: FDA-Public Use
  Company Number: DE-SANOFI-SYNTHELABO-A01200815976

PATIENT
  Sex: Male
  Weight: 56 kg

DRUGS (14)
  1. AVE5026 OR PLACEBO [Concomitant]
     Indication: VENOUS THROMBOSIS
     Dates: start: 20081127, end: 20081127
  2. EMBOLEX [Concomitant]
     Indication: PROPHYLAXIS
     Dosage: 0.3 ML
     Route: 058
     Dates: start: 20080923, end: 20081002
  3. RANITIDINE [Concomitant]
     Dates: start: 20081127, end: 20081127
  4. FENISTIL [Concomitant]
     Dates: start: 20081127, end: 20081127
  5. GRANISETRON HCL [Concomitant]
     Indication: ANTIEMETIC SUPPORTIVE CARE
     Dates: start: 20081127, end: 20081128
  6. FUROSEMIDE [Concomitant]
     Dates: start: 20081009
  7. OMEPRAZOLE [Concomitant]
     Dates: start: 20081009
  8. MCP [Concomitant]
     Dates: start: 20081009
  9. DEXAMETHASONE TAB [Concomitant]
     Dates: start: 20081128, end: 20081128
  10. PREDNISON [Concomitant]
     Dates: start: 20081127, end: 20081127
  11. AVASTIN [Suspect]
     Indication: COLON CANCER
     Route: 041
     Dates: start: 20081127, end: 20081127
  12. FLUOROURACIL [Suspect]
     Indication: COLON CANCER
     Dosage: 400 MG/M2 BOLUS (640 MG DRIP) FOLLOWED BY 600 MG/M2 INFUSION (960 MG) OVER 22 HOURS
     Route: 041
     Dates: start: 20081127, end: 20081128
  13. CALCIUM FOLINATE [Suspect]
     Indication: COLON CANCER
     Route: 041
     Dates: start: 20081127, end: 20081128
  14. OXALIPLATIN [Suspect]
     Indication: COLON CANCER
     Route: 041
     Dates: start: 20081127, end: 20081127

REACTIONS (2)
  - DISEASE PROGRESSION [None]
  - DYSPNOEA [None]
